FAERS Safety Report 7786755-7 (Version None)
Quarter: 2011Q3

REPORT INFORMATION
  Report Type: 
  Country: None (occurrence: None)
  Receive Date: 20110929
  Receipt Date: 20110920
  Transmission Date: 20111222
  Serious: Yes (Other)
  Sender: FDA-Public Use
  Company Number: US-PFIZER INC-2011222962

PATIENT
  Age: 9 Year
  Sex: Female
  Weight: 36.6 kg

DRUGS (1)
  1. CRIZOTINIB [Suspect]
     Indication: NEUROBLASTOMA
     Dosage: 280 MG/M2, 2X/DAY
     Route: 048
     Dates: start: 20110818, end: 20110907

REACTIONS (1)
  - PRESYNCOPE [None]
